FAERS Safety Report 5154863-5 (Version None)
Quarter: 2006Q4

REPORT INFORMATION
  Report Type: 
  Country: None (occurrence: None)
  Receive Date: 20061121
  Receipt Date: 20061113
  Transmission Date: 20070319
  Serious: Yes (Life-Threatening, Hospitalization, Other)
  Sender: FDA-Public Use
  Company Number: PHNU2006DE03725

PATIENT
  Sex: Male

DRUGS (18)
  1. ESIDRIX [Suspect]
     Dosage: 25 MG/D
     Route: 048
     Dates: start: 20060621, end: 20060703
  2. LUDIOMIL [Suspect]
     Indication: DEPRESSION
     Dosage: 25 MG/D INCREASING TO 125 MG/D
     Route: 042
     Dates: start: 20060621
  3. LUDIOMIL [Suspect]
     Dosage: 125 MG/D
     Route: 048
     Dates: start: 20060630, end: 20060707
  4. LUDIOMIL [Suspect]
     Dosage: 75 MG BD
     Route: 048
     Dates: start: 20060705
  5. CONCOR [Suspect]
     Dosage: 10 MG/D
     Route: 048
     Dates: start: 20060623
  6. CONCOR [Suspect]
     Dosage: 5 MG, BID
     Dates: start: 20060705
  7. HYDROCHLOROTHIAZIDE [Concomitant]
     Dosage: 12.5 MG/D
     Route: 048
  8. HYDROCHLOROTHIAZIDE [Concomitant]
     Dosage: 25MG/D
     Route: 048
     Dates: start: 20060705
  9. TEBONIN [Concomitant]
     Dosage: 80 MG/D
     Route: 048
  10. TAVOR [Concomitant]
     Dosage: 1 MG/D
     Route: 048
     Dates: start: 20060612, end: 20060621
  11. TAVOR [Concomitant]
     Dosage: 1.5 MG/D
     Route: 048
     Dates: start: 20060622
  12. TAVOR [Concomitant]
     Dosage: 0.25MG/D
     Dates: start: 20060705
  13. SODIUM CHLORIDE [Concomitant]
     Dosage: 2 DF/D
     Dates: start: 20060613, end: 20060620
  14. SODIUM CHLORIDE [Concomitant]
     Dosage: 3 DF/D
     Dates: start: 20060621
  15. SODIUM CHLORIDE [Concomitant]
     Dosage: 3DF/D
     Dates: start: 20060705
  16. IBUPROFEN [Concomitant]
     Dosage: 400MG
     Dates: start: 20060705
  17. MOVICOL [Concomitant]
     Dosage: 1/D
     Dates: start: 20060727
  18. LASIX [Concomitant]
     Dosage: 40MG/D
     Dates: start: 20060727

REACTIONS (17)
  - AORTIC ARTERIOSCLEROSIS [None]
  - CEREBRAL ATROPHY [None]
  - COMPUTERISED TOMOGRAM ABNORMAL [None]
  - DRUG LEVEL BELOW THERAPEUTIC [None]
  - ELECTROENCEPHALOGRAM ABNORMAL [None]
  - FALL [None]
  - FEMORAL NECK FRACTURE [None]
  - GAMMA-GLUTAMYLTRANSFERASE INCREASED [None]
  - HAEMATOMA [None]
  - HAEMOGLOBIN DECREASED [None]
  - HEART RATE INCREASED [None]
  - HYPOTENSION [None]
  - MEDIASTINAL DISORDER [None]
  - NERVOUS SYSTEM DISORDER [None]
  - PAIN [None]
  - PROSTHESIS IMPLANTATION [None]
  - RESPIRATORY FAILURE [None]
